FAERS Safety Report 11549147 (Version 1)
Quarter: 2015Q3

REPORT INFORMATION
  Report Type: Spontaneous
  Country: US (occurrence: US)
  Receive Date: 20150924
  Receipt Date: 20150924
  Transmission Date: 20151125
  Serious: No
  Sender: FDA-Public Use
  Company Number: US-ELI_LILLY_AND_COMPANY-US201509007237

PATIENT
  Sex: Male

DRUGS (4)
  1. HUMALOG [Suspect]
     Active Substance: INSULIN LISPRO
     Indication: TYPE 2 DIABETES MELLITUS
     Dosage: 22 DF, EACH MORNING
     Route: 065
     Dates: start: 201503
  2. LANTUS [Concomitant]
     Active Substance: INSULIN GLARGINE
     Dosage: 95 U, UNKNOWN
     Route: 065
  3. HUMALOG [Suspect]
     Active Substance: INSULIN LISPRO
     Dosage: 34 DF, EACH EVENING
     Route: 065
     Dates: start: 201503
  4. HUMALOG [Suspect]
     Active Substance: INSULIN LISPRO
     Dosage: 26 DF, QD AT LUNCH
     Route: 065
     Dates: start: 201503

REACTIONS (2)
  - Injection site pain [Unknown]
  - Drug dose omission [Unknown]
